FAERS Safety Report 23222883 (Version 1)
Quarter: 2023Q4

REPORT INFORMATION
  Report Type: Spontaneous
  Country: ES (occurrence: ES)
  Receive Date: 20231123
  Receipt Date: 20231123
  Transmission Date: 20240110
  Serious: Yes (Hospitalization)
  Sender: FDA-Public Use
  Company Number: ES-AEMPS-1410166

PATIENT
  Age: 85 Year
  Sex: Male
  Weight: 71 kg

DRUGS (2)
  1. CLOPIDOGREL [Interacting]
     Active Substance: CLOPIDOGREL BISULFATE
     Indication: Angina unstable
     Dosage: 75 MILLIGRAM, QD, 1 PER DAY
     Route: 048
     Dates: start: 20230419, end: 20230612
  2. PRADAXA [Interacting]
     Active Substance: DABIGATRAN ETEXILATE MESYLATE
     Indication: Atrial fibrillation
     Dosage: 110 MILLIGRAM, BID, 1 EVERY 12 HOURS
     Route: 048
     Dates: start: 20220906, end: 20230611

REACTIONS (2)
  - Blood loss anaemia [Recovering/Resolving]
  - Lower gastrointestinal haemorrhage [Recovered/Resolved]

NARRATIVE: CASE EVENT DATE: 20230606
